FAERS Safety Report 10155066 (Version 1)
Quarter: 2014Q2

REPORT INFORMATION
  Report Type: Spontaneous
  Country: FR (occurrence: FR)
  Receive Date: 20140506
  Receipt Date: 20140506
  Transmission Date: 20141212
  Serious: Yes (Hospitalization)
  Sender: FDA-Public Use
  Company Number: FR-JNJFOC-20140500509

PATIENT
  Age: 36 Year
  Sex: Female

DRUGS (2)
  1. REMICADE [Suspect]
     Indication: COLITIS ULCERATIVE
     Route: 042
     Dates: start: 2009
  2. IMUREL [Concomitant]
     Indication: COLITIS ULCERATIVE
     Route: 065
     Dates: start: 2008

REACTIONS (2)
  - Basal cell carcinoma [Recovering/Resolving]
  - Superficial spreading melanoma stage I [Recovering/Resolving]
